FAERS Safety Report 9252068 (Version 1)
Quarter: 2013Q1

REPORT INFORMATION
  Report Type: Spontaneous
  Country: US (occurrence: None)
  Receive Date: 20130305
  Receipt Date: 20130305
  Transmission Date: 20140127
  Serious: Yes (Other)
  Sender: FDA-Public Use
  Company Number: 163-21880-12091020

PATIENT
  Age: 67 Year
  Sex: Female

DRUGS (4)
  1. REVLIMID (LENALIDOMIDE) [Suspect]
     Indication: PLASMA CELL MYELOMA
     Dosage: 5 MG, 21 IN 21 D, PO
     Route: 048
     Dates: start: 20120410
  2. NITROFURANTOIN MACROCRYSTAL (NITROFURANTOIN) (UNKNOWN) [Concomitant]
  3. ACETAMINOPHEN-CODEINE (GALENIC/PARACETAMOL/CODEINE/) (UNKNOWN) [Concomitant]
  4. ICY HOT EXTRA STRENGTH (METHYL SALICYLATE) (UNKNOWN) [Concomitant]

REACTIONS (1)
  - Blood count abnormal [None]
